FAERS Safety Report 12171545 (Version 1)
Quarter: 2016Q1

REPORT INFORMATION
  Report Type: Spontaneous
  Country: US (occurrence: US)
  Receive Date: 20160311
  Receipt Date: 20160311
  Transmission Date: 20160526
  Serious: Yes (Hospitalization)
  Sender: FDA-Public Use
  Company Number: US-009507513-1603USA003248

PATIENT
  Age: 60 Year
  Sex: Female

DRUGS (2)
  1. PRINIVIL [Suspect]
     Active Substance: LISINOPRIL
     Dosage: 2.5 MG, DAILY
     Route: 048
  2. PREDNISONE. [Concomitant]
     Active Substance: PREDNISONE
     Indication: CUTANEOUS VASCULITIS
     Dosage: 15 MG, DAILY

REACTIONS (1)
  - Drug ineffective [Unknown]
